FAERS Safety Report 5007220-6 (Version None)
Quarter: 2006Q1

REPORT INFORMATION
  Report Type: 
  Country: None (occurrence: None)
  Receive Date: 20060320
  Receipt Date: 20050422
  Transmission Date: 20060701
  Serious: Yes (Other)
  Sender: FDA-Public Use
  Company Number: 2005-04-1772

PATIENT
  Sex: Female

DRUGS (2)
  1. PEG-INTRON [Suspect]
     Dates: start: 20050101
  2. REBETOL [Suspect]
     Dosage: ORAL
     Route: 048
     Dates: start: 20050101

REACTIONS (1)
  - INJECTION SITE NECROSIS [None]
